FAERS Safety Report 20845082 (Version 1)
Quarter: 2022Q2

REPORT INFORMATION
  Report Type: Spontaneous
  Country: US (occurrence: None)
  Receive Date: 20220517
  Receipt Date: 20220517
  Transmission Date: 20220721
  Serious: Yes (unspecified)
  Sender: FDA-Public Use
  Company Number: None

PATIENT
  Age: 25 Year
  Sex: Male
  Weight: 96.3 kg

DRUGS (2)
  1. TOPAMAX [Suspect]
     Active Substance: TOPIRAMATE
     Indication: Migraine
     Dosage: OTHER QUANTITY : 1 CAPSULE(S);?
     Route: 048
     Dates: start: 20210509, end: 20210608
  2. NEXIUM [Concomitant]
     Active Substance: ESOMEPRAZOLE MAGNESIUM

REACTIONS (12)
  - Paraesthesia [None]
  - Aggression [None]
  - Insomnia [None]
  - Nightmare [None]
  - Visual impairment [None]
  - Energy increased [None]
  - Anxiety [None]
  - Obsessive-compulsive disorder [None]
  - Negative thoughts [None]
  - Tremor [None]
  - Chest pain [None]
  - Agitation [None]

NARRATIVE: CASE EVENT DATE: 20210608
